FAERS Safety Report 11246253 (Version 1)
Quarter: 2015Q3

REPORT INFORMATION
  Report Type: Spontaneous
  Country: US (occurrence: None)
  Receive Date: 20150706
  Receipt Date: 20150706
  Transmission Date: 20151125
  Serious: No
  Sender: FDA-Public Use
  Company Number: None

PATIENT
  Age: 76 Year
  Sex: Male
  Weight: 79.38 kg

DRUGS (10)
  1. ZICAM COLD REMEDY NASAL SWABS (ZINC) [Suspect]
     Active Substance: ZINC ACETATE\ZINC GLUCONATE
     Indication: NASOPHARYNGITIS
     Dosage: 1 SWAB, EVERY 4 HOURS, IN EACH NOSTRIL
  2. CENTRUM SILVER [Concomitant]
     Active Substance: VITAMINS
  3. ASPIRIN. [Concomitant]
     Active Substance: ASPIRIN
  4. RAPAFLO [Concomitant]
     Active Substance: SILODOSIN
  5. VITAMIN B12 [Concomitant]
     Active Substance: CYANOCOBALAMIN
  6. VITAMIN D3 [Concomitant]
     Active Substance: CHOLECALCIFEROL
  7. DIGOXIN. [Concomitant]
     Active Substance: DIGOXIN
  8. SIMVASTATIN. [Concomitant]
     Active Substance: SIMVASTATIN
  9. INDOCIN [Concomitant]
     Active Substance: INDOMETHACIN\INDOMETHACIN SODIUM
  10. LOPRESSOR [Concomitant]
     Active Substance: METOPROLOL TARTRATE

REACTIONS (2)
  - Anosmia [None]
  - Product quality issue [None]

NARRATIVE: CASE EVENT DATE: 20111231
